FAERS Safety Report 9933242 (Version 2)
Quarter: 2014Q1

REPORT INFORMATION
  Report Type: Report from Study
  Country: US (occurrence: US)
  Receive Date: 20140228
  Receipt Date: 20140228
  Transmission Date: 20141002
  Serious: Yes (Hospitalization, Other)
  Sender: FDA-Public Use
  Company Number: US-MYLANLABS-2013S1001332

PATIENT
  Age: 20 Year
  Sex: Female

DRUGS (3)
  1. AMNESTEEM CAPSULES [Suspect]
     Indication: ACNE
     Route: 048
     Dates: end: 20130104
  2. CLARAVIS [Suspect]
     Indication: ACNE
     Route: 048
     Dates: start: 20120725
  3. GIANVI [Suspect]
     Indication: ORAL CONTRACEPTION
     Dates: end: 20130104

REACTIONS (1)
  - Headache [Not Recovered/Not Resolved]
